FAERS Safety Report 7938626-0 (Version None)
Quarter: 2011Q4

REPORT INFORMATION
  Report Type: 
  Country: None (occurrence: None)
  Receive Date: 20111123
  Receipt Date: 20111115
  Transmission Date: 20120403
  Serious: Yes (Hospitalization, Other)
  Sender: FDA-Public Use
  Company Number: US-RB-034313-11

PATIENT
  Age: 30 Year
  Sex: Female

DRUGS (4)
  1. SUBOXONE [Suspect]
     Indication: DRUG DEPENDENCE
     Dosage: 8-12 MG DAILY
     Route: 060
     Dates: start: 20100718, end: 20101101
  2. SUBOXONE [Suspect]
     Dosage: 8-12 MG DAILY
     Route: 060
     Dates: start: 20101101, end: 20111001
  3. SUBOXONE [Suspect]
     Indication: DRUG DEPENDENCE
     Route: 060
     Dates: start: 20111001, end: 20110101
  4. SUBOXONE [Suspect]
     Route: 060
     Dates: start: 20110101

REACTIONS (3)
  - WRONG TECHNIQUE IN DRUG USAGE PROCESS [None]
  - POST PROCEDURAL INFECTION [None]
  - POST PROCEDURAL HAEMATOMA [None]
